FAERS Safety Report 13711150 (Version 1)
Quarter: 2017Q3

REPORT INFORMATION
  Report Type: Spontaneous
  Country: US (occurrence: US)
  Receive Date: 20170703
  Receipt Date: 20170703
  Transmission Date: 20171127
  Serious: Yes (Other)
  Sender: FDA-Public Use
  Company Number: None

PATIENT
  Age: 56 Year
  Sex: Female
  Weight: 100.33 kg

DRUGS (1)
  1. CARVEDILOL 25MG [Suspect]
     Active Substance: CARVEDILOL
     Indication: CARDIAC DISORDER
     Dates: start: 20170313

REACTIONS (6)
  - Contusion [None]
  - Headache [None]
  - Fatigue [None]
  - Weight increased [None]
  - Cardiac failure congestive [None]
  - Dyspnoea [None]

NARRATIVE: CASE EVENT DATE: 20170313
